FAERS Safety Report 15764344 (Version 2)
Quarter: 2019Q1

REPORT INFORMATION
  Report Type: Spontaneous
  Country: US (occurrence: US)
  Receive Date: 20181227
  Receipt Date: 20190102
  Transmission Date: 20190417
  Serious: No
  Sender: FDA-Public Use
  Company Number: US-PCCINC-2018-PEL-003345

PATIENT

DRUGS (2)
  1. GABLOFEN [Suspect]
     Active Substance: BACLOFEN
     Indication: CEREBRAL PALSY
  2. GABLOFEN [Suspect]
     Active Substance: BACLOFEN
     Indication: MUSCLE SPASTICITY
     Dosage: 148.7 ?G, QD
     Route: 037

REACTIONS (4)
  - Implant site extravasation [Recovered/Resolved]
  - Infection [Unknown]
  - Muscle spasticity [Recovered/Resolved]
  - Implant site irritation [Recovered/Resolved]
